FAERS Safety Report 8241014-3 (Version None)
Quarter: 2012Q1

REPORT INFORMATION
  Report Type: 
  Country: None (occurrence: None)
  Receive Date: 20120328
  Receipt Date: 20120323
  Transmission Date: 20120608
  Serious: Yes (Hospitalization, Disabling, Other)
  Sender: FDA-Public Use
  Company Number: US-MERCK-1108USA01804

PATIENT
  Age: 72 Year
  Sex: Female
  Weight: 70 kg

DRUGS (3)
  1. FOSAMAX [Suspect]
     Indication: OSTEOPOROSIS PROPHYLAXIS
     Route: 048
     Dates: start: 19970428, end: 19971222
  2. BONIVA [Suspect]
     Indication: OSTEOPOROSIS
     Route: 048
     Dates: start: 20060701, end: 20090728
  3. ACTONEL [Suspect]
     Indication: OSTEOPOROSIS PROPHYLAXIS
     Route: 048
     Dates: start: 20060501, end: 20060701

REACTIONS (50)
  - LUNG NEOPLASM MALIGNANT [None]
  - PANCREATITIS [None]
  - ABSCESS ORAL [None]
  - THROMBOSIS [None]
  - DYSGEUSIA [None]
  - ARTHROPATHY [None]
  - DENTAL CARIES [None]
  - VERTIGO [None]
  - LUNG HYPERINFLATION [None]
  - HYPOTHYROIDISM [None]
  - ORAL INFECTION [None]
  - VOMITING [None]
  - UPPER RESPIRATORY TRACT INFECTION [None]
  - TOOTH DISORDER [None]
  - NAUSEA [None]
  - BILE DUCT STONE [None]
  - BREAST CANCER METASTATIC [None]
  - CHOLECYSTITIS [None]
  - CHRONIC OBSTRUCTIVE PULMONARY DISEASE [None]
  - IMPAIRED HEALING [None]
  - SYNOVIAL CYST [None]
  - MUSCULOSKELETAL PAIN [None]
  - TOOTH INFECTION [None]
  - AORTIC ARTERIOSCLEROSIS [None]
  - DEEP VEIN THROMBOSIS [None]
  - GINGIVAL DISORDER [None]
  - FISTULA DISCHARGE [None]
  - OSTEOPENIA [None]
  - CATARACT [None]
  - OVERDOSE [None]
  - GASTROOESOPHAGEAL REFLUX DISEASE [None]
  - OSTEOPOROSIS [None]
  - WEIGHT DECREASED [None]
  - METASTATIC NEOPLASM [None]
  - LUNG NEOPLASM [None]
  - JAW DISORDER [None]
  - CHRONIC SINUSITIS [None]
  - ESSENTIAL HYPERTENSION [None]
  - OSTEONECROSIS OF JAW [None]
  - JOINT SWELLING [None]
  - DERMATITIS [None]
  - FATIGUE [None]
  - HYPOAESTHESIA [None]
  - INSOMNIA [None]
  - CYSTITIS INTERSTITIAL [None]
  - CHOLECYSTITIS CHRONIC [None]
  - PURULENT DISCHARGE [None]
  - OSTEOMYELITIS [None]
  - OROANTRAL FISTULA [None]
  - NASOPHARYNGITIS [None]
